FAERS Safety Report 9197499 (Version 1)
Quarter: 2013Q1

REPORT INFORMATION
  Report Type: Spontaneous
  Country: US (occurrence: None)
  Receive Date: 20120709
  Receipt Date: 20120709
  Transmission Date: 20140127
  Serious: Yes (Disabling)
  Sender: FDA-Public Use
  Company Number: PHEH2011US05497

PATIENT
  Age: 76 Year
  Sex: Female

DRUGS (2)
  1. GLEEVEC [Suspect]
     Indication: CHRONIC MYELOID LEUKAEMIA
     Route: 048
     Dates: start: 20110516
  2. SPRYCEL (DASATINIB) [Concomitant]

REACTIONS (3)
  - Dyspepsia [None]
  - Alopecia [None]
  - Nausea [None]
